FAERS Safety Report 21466359 (Version 1)
Quarter: 2022Q4

REPORT INFORMATION
  Report Type: Report from Study
  Country: NZ (occurrence: NZ)
  Receive Date: 20221017
  Receipt Date: 20221017
  Transmission Date: 20230113
  Serious: Yes (Death, Life-Threatening, Hospitalization)
  Sender: FDA-Public Use
  Company Number: NZ-JNJFOC-20140214886

PATIENT
  Age: 74 Year
  Sex: Male

DRUGS (1)
  1. EVARREST [Suspect]
     Active Substance: FIBRINOGEN HUMAN\THROMBIN HUMAN
     Indication: Haemostasis
     Route: 061
     Dates: start: 20091012, end: 20091012

REACTIONS (3)
  - Respiratory distress [Fatal]
  - Aspiration [Fatal]
  - Aspiration [Recovered/Resolved]

NARRATIVE: CASE EVENT DATE: 20091015
